FAERS Safety Report 8805460 (Version 1)
Quarter: 2012Q4

REPORT INFORMATION
  Report Type: Spontaneous
  Country: US (occurrence: None)
  Receive Date: 20120918
  Receipt Date: 20120918
  Transmission Date: 20130627
  Serious: Yes (Life-Threatening)
  Sender: FDA-Public Use
  Company Number: None

PATIENT
  Age: 47 Year
  Sex: Female
  Weight: 92.4 kg

DRUGS (2)
  1. SEROQUEL XR [Suspect]
     Indication: DEPRESSIVE DISORDER
  2. GEODON [Suspect]

REACTIONS (2)
  - Somnolence [None]
  - Angina pectoris [None]
